FAERS Safety Report 11697230 (Version 1)
Quarter: 2015Q4

REPORT INFORMATION
  Report Type: Spontaneous
  Country: TR (occurrence: TR)
  Receive Date: 20151104
  Receipt Date: 20151104
  Transmission Date: 20160304
  Serious: Yes (Hospitalization, Other)
  Sender: FDA-Public Use
  Company Number: PHHY2015TR142382

PATIENT
  Age: 24 Year
  Sex: Female

DRUGS (1)
  1. AMITRIPTYLINE [Suspect]
     Active Substance: AMITRIPTYLINE
     Indication: PRODUCT USED FOR UNKNOWN INDICATION
     Dosage: 520 MG, UNK
     Route: 065

REACTIONS (7)
  - Body temperature increased [Unknown]
  - Intentional overdose [Unknown]
  - Toxicity to various agents [Unknown]
  - Mydriasis [Unknown]
  - Hypotension [Recovered/Resolved]
  - Sinus tachycardia [Recovering/Resolving]
  - Dysarthria [Unknown]
